FAERS Safety Report 16131753 (Version 3)
Quarter: 2019Q3

REPORT INFORMATION
  Report Type: Spontaneous
  Country: US (occurrence: US)
  Receive Date: 20190329
  Receipt Date: 20190915
  Transmission Date: 20191004
  Serious: No
  Sender: FDA-Public Use
  Company Number: US-ELI_LILLY_AND_COMPANY-US201903011341

PATIENT
  Sex: Female

DRUGS (1)
  1. TRULICITY [Suspect]
     Active Substance: DULAGLUTIDE
     Indication: PRODUCT USED FOR UNKNOWN INDICATION
     Dosage: UNK, UNKNOWN
     Route: 065

REACTIONS (7)
  - Back pain [Unknown]
  - Eructation [Unknown]
  - Alopecia [Unknown]
  - Vomiting projectile [Unknown]
  - Diarrhoea [Unknown]
  - Muscle spasms [Unknown]
  - Gastrointestinal disorder [Unknown]
